FAERS Safety Report 4704769-8 (Version None)
Quarter: 2005Q2

REPORT INFORMATION
  Report Type: 
  Country: None (occurrence: None)
  Receive Date: 20050630
  Receipt Date: 20050614
  Transmission Date: 20051028
  Serious: Yes (Other)
  Sender: FDA-Public Use
  Company Number: US-2005-011010

PATIENT
  Age: 49 Year
  Sex: Female

DRUGS (6)
  1. FLUDARA [Suspect]
     Indication: NON-HODGKIN'S LYMPHOMA UNSPECIFIED HISTOLOGY INDOLENT STAGE IV
     Dosage: 25 MG/M2, D1-3; INTRAVENOUS
     Route: 042
  2. MITOXANTRONE [Suspect]
     Indication: NON-HODGKIN'S LYMPHOMA UNSPECIFIED HISTOLOGY INDOLENT STAGE IV
     Dosage: 10 MG/M2, D1; INTRAVENOUS
     Route: 042
  3. DEXAMETHASONE [Suspect]
     Indication: NON-HODGKIN'S LYMPHOMA UNSPECIFIED HISTOLOGY INDOLENT STAGE IV
     Dosage: 20 MG, D1-5 Q4WKS X 8 CYCLES; ORAL, SEE IMAGE
     Route: 048
  4. RITUXIMAB (RITUXIMAB) [Suspect]
     Indication: NON-HODGKIN'S LYMPHOMA UNSPECIFIED HISTOLOGY INDOLENT STAGE IV
     Dosage: 375 MG/M2, D1+8 OF COURSE 1; INTRAVENOUS, (SEE IMAGE)
     Route: 042
  5. INTERFERON ALFA-2B (INTERFERON ALFA-2B) [Suspect]
     Indication: NON-HODGKIN'S LYMPHOMA UNSPECIFIED HISTOLOGY INDOLENT STAGE IV
     Dosage: 3 MIU/M2, 1X/DAY D2 TO D14; SUBCUTANEOUS
     Route: 058
  6. FLUDARA [Suspect]

REACTIONS (1)
  - REFRACTORY ANAEMIA WITH AN EXCESS OF BLASTS [None]
